FAERS Safety Report 4339509-8 (Version None)
Quarter: 2004Q2

REPORT INFORMATION
  Report Type: 
  Country: None (occurrence: None)
  Receive Date: 20040415
  Receipt Date: 20030501
  Transmission Date: 20050107
  Serious: Yes (Hospitalization)
  Sender: FDA-Public Use
  Company Number: PHHO2003CA05694

PATIENT
  Age: 40 Year
  Sex: Female

DRUGS (3)
  1. DILAUDID [Suspect]
  2. DEMEROL [Suspect]
  3. ZELNORM [Suspect]
     Dosage: 6 MG, BID
     Route: 048

REACTIONS (2)
  - ABDOMINAL DISTENSION [None]
  - CONSTIPATION [None]
